FAERS Safety Report 9642911 (Version 1)
Quarter: 2013Q4

REPORT INFORMATION
  Report Type: Spontaneous
  Country: US (occurrence: US)
  Receive Date: 20131024
  Receipt Date: 20131024
  Transmission Date: 20140711
  Serious: Yes (Other)
  Sender: FDA-Public Use
  Company Number: PHEH2013US022086

PATIENT
  Sex: Female

DRUGS (5)
  1. EXELON PATCH [Suspect]
     Dosage: 9.5 MG/24H
     Route: 062
     Dates: start: 20130612, end: 20130822
  2. CYMBALTA [Concomitant]
     Indication: FIBROMYALGIA
     Dosage: 120 MG, BID
  3. METOPROLOL [Concomitant]
     Dosage: UNK UKN, UNK
  4. XANAX [Concomitant]
     Dosage: UNK UKN, UNK
  5. ANTIHYPERTENSIVES [Concomitant]
     Indication: BLOOD PRESSURE ABNORMAL
     Dosage: UNK UKN, UNK

REACTIONS (10)
  - Dementia [Unknown]
  - Head injury [Unknown]
  - Fall [Unknown]
  - Drug prescribing error [Unknown]
  - Confusional state [Unknown]
  - Urinary tract infection [Unknown]
  - Diarrhoea [Unknown]
  - Application site rash [Unknown]
  - Application site pruritus [Unknown]
  - Application site erythema [Unknown]
